FAERS Safety Report 8597782-4 (Version None)
Quarter: 2012Q3

REPORT INFORMATION
  Report Type: 
  Country: None (occurrence: None)
  Receive Date: 20120803
  Receipt Date: 20120724
  Transmission Date: 20120928
  Serious: Yes (Other)
  Sender: FDA-Public Use
  Company Number: ADR-2012-01278

PATIENT
  Sex: Female

DRUGS (3)
  1. BUPIVACAINE HCL [Concomitant]
  2. BACLOFEN [Suspect]
     Indication: PAIN
  3. MORPHINE [Concomitant]

REACTIONS (12)
  - NAUSEA [None]
  - APPLICATION SITE ANAESTHESIA [None]
  - FEELING ABNORMAL [None]
  - PAIN [None]
  - NEURALGIA [None]
  - DEVICE LEAKAGE [None]
  - PAROSMIA [None]
  - DYSGEUSIA [None]
  - DEVICE FAILURE [None]
  - MALAISE [None]
  - DRUG EFFECT DECREASED [None]
  - BACK PAIN [None]
